FAERS Safety Report 7929950-6 (Version None)
Quarter: 2011Q4

REPORT INFORMATION
  Report Type: 
  Country: None (occurrence: None)
  Receive Date: 20111118
  Receipt Date: 20111118
  Transmission Date: 20120403
  Serious: No
  Sender: FDA-Public Use
  Company Number: None

PATIENT
  Age: 63 Year
  Sex: Male

DRUGS (1)
  1. LEXISCAN [Suspect]
     Dosage: 0.4 MG/5 ML IVP OVER 10 SEC

REACTIONS (4)
  - CONVULSION [None]
  - FLUSHING [None]
  - ATRIAL FIBRILLATION [None]
  - CARDIAC ARREST [None]
